FAERS Safety Report 14739760 (Version 3)
Quarter: 2018Q4

REPORT INFORMATION
  Report Type: Spontaneous
  Country: US (occurrence: US)
  Receive Date: 20180410
  Receipt Date: 20181217
  Transmission Date: 20190204
  Serious: No
  Sender: FDA-Public Use
  Company Number: US-PFIZER INC-2018141681

PATIENT
  Age: 33 Year
  Sex: Female

DRUGS (3)
  1. IBRANCE [Suspect]
     Active Substance: PALBOCICLIB
     Indication: BREAST CANCER FEMALE
     Dosage: 75 MG, CYCLIC (TAKE 1 CAPSULE BY MOUTH DAILY FOR 21 DAYS THEN OFF 7 DAYS)
     Route: 048
     Dates: start: 201406
  2. IBRANCE [Suspect]
     Active Substance: PALBOCICLIB
     Indication: MULTIPLE SCLEROSIS
     Dosage: 125 MG, CYCLIC (EVERY DAY FOR 21 DAYS EVERY 28 DAYS)
     Route: 048
     Dates: start: 201802, end: 2018
  3. IBRANCE [Suspect]
     Active Substance: PALBOCICLIB
     Dosage: 75 MG, CYCLIC(DAILY FOR 21 DAYS THEN OFF 7 DAYS)
     Route: 048
     Dates: start: 201802

REACTIONS (3)
  - Nausea [Recovered/Resolved]
  - Diarrhoea [Recovered/Resolved]
  - White blood cell count decreased [Recovering/Resolving]

NARRATIVE: CASE EVENT DATE: 2018
